FAERS Safety Report 20901103 (Version 3)
Quarter: 2022Q3

REPORT INFORMATION
  Report Type: Report from Study
  Country: BR (occurrence: BR)
  Receive Date: 20220601
  Receipt Date: 20220823
  Transmission Date: 20221026
  Serious: Yes (Other)
  Sender: FDA-Public Use
  Company Number: BR-NOVARTISPH-NVSC2022BR126063

PATIENT
  Age: 64 Year
  Sex: Female

DRUGS (3)
  1. KISQALI [Suspect]
     Active Substance: RIBOCICLIB
     Indication: Breast cancer
     Dosage: 2 DOSAGE FORM
     Route: 065
  2. KISQALI [Suspect]
     Active Substance: RIBOCICLIB
     Dosage: UNK
     Route: 065
  3. KISQALI [Suspect]
     Active Substance: RIBOCICLIB
     Dosage: UNK
     Route: 065
     Dates: start: 202202

REACTIONS (9)
  - Metastasis [Unknown]
  - Decreased immune responsiveness [Unknown]
  - Chills [Unknown]
  - Hypersensitivity [Unknown]
  - Stress [Unknown]
  - Blister [Unknown]
  - Pruritus [Unknown]
  - Rash macular [Unknown]
  - Scratch [Unknown]

NARRATIVE: CASE EVENT DATE: 20220812
